FAERS Safety Report 5474301-2 (Version None)
Quarter: 2007Q4

REPORT INFORMATION
  Report Type: 
  Country: None (occurrence: None)
  Receive Date: 20071002
  Receipt Date: 20070627
  Transmission Date: 20080405
  Serious: No
  Sender: FDA-Public Use
  Company Number: US-ASTRAZENECA-2007UW15258

PATIENT
  Age: 76 Year
  Sex: Female
  Weight: 86.2 kg

DRUGS (4)
  1. ARIMIDEX [Suspect]
     Indication: BREAST CANCER FEMALE
     Route: 048
     Dates: start: 20040101
  2. GLIMERIDE [Concomitant]
  3. MOBIC [Concomitant]
  4. COMBIVENT [Concomitant]

REACTIONS (1)
  - HYPERTRICHOSIS [None]
